FAERS Safety Report 7964315-2 (Version None)
Quarter: 2011Q4

REPORT INFORMATION
  Report Type: 
  Country: None (occurrence: None)
  Receive Date: 20111208
  Receipt Date: 20111201
  Transmission Date: 20120403
  Serious: Yes (Other)
  Sender: FDA-Public Use
  Company Number: JP-JNJFOC-20111104598

PATIENT
  Age: 71 Year
  Sex: Male

DRUGS (5)
  1. SINGULAIR [Concomitant]
     Dates: start: 20110901
  2. UNKNOWN MEDICATION [Suspect]
     Indication: PRODUCT USED FOR UNKNOWN INDICATION
     Route: 065
  3. TRAMADOL HYDROCHLORIDE/ACETAMINOPHEN [Suspect]
     Indication: BACK PAIN
     Route: 048
     Dates: start: 20111101, end: 20111104
  4. CRESTOR [Concomitant]
     Route: 048
     Dates: start: 20110101
  5. ADVAIR DISKUS 100/50 [Concomitant]
     Route: 065

REACTIONS (2)
  - GASTROENTERITIS [None]
  - NAUSEA [None]
